FAERS Safety Report 19516335 (Version 1)
Quarter: 2021Q3

REPORT INFORMATION
  Report Type: Spontaneous
  Country: US (occurrence: US)
  Receive Date: 20210709
  Receipt Date: 20210709
  Transmission Date: 20211014
  Serious: No
  Sender: FDA-Public Use
  Company Number: US-ASTELLAS-2020US035522

PATIENT
  Age: 84 Year
  Sex: Female

DRUGS (1)
  1. MYRBETRIQ [Suspect]
     Active Substance: MIRABEGRON
     Indication: HYPERTONIC BLADDER
     Route: 065
     Dates: end: 202010

REACTIONS (4)
  - Dry mouth [Not Recovered/Not Resolved]
  - Dysuria [Recovering/Resolving]
  - Urine flow decreased [Recovering/Resolving]
  - Swelling face [Recovering/Resolving]
